FAERS Safety Report 16716073 (Version 1)
Quarter: 2019Q3

REPORT INFORMATION
  Report Type: Spontaneous
  Country: GB (occurrence: GB)
  Receive Date: 20190819
  Receipt Date: 20190819
  Transmission Date: 20191005
  Serious: Yes (Other)
  Sender: FDA-Public Use
  Company Number: GB-MYLANLABS-2019M1076594

PATIENT
  Age: 77 Year
  Sex: Male

DRUGS (13)
  1. PREDNISOLONE. [Concomitant]
     Active Substance: PREDNISOLONE
     Indication: CHRONIC OBSTRUCTIVE PULMONARY DISEASE
     Dosage: UNK
  2. PROCHLORPERAZINE. [Concomitant]
     Active Substance: PROCHLORPERAZINE
     Dosage: UNK
  3. VORICONAZOLE. [Suspect]
     Active Substance: VORICONAZOLE
     Indication: ASPERGILLUS INFECTION
     Dosage: 3 MG/KG, Q12H
     Route: 042
  4. AMILORIDE [Concomitant]
     Active Substance: AMILORIDE
     Dosage: UNK
  5. ITRACONAZOLE. [Suspect]
     Active Substance: ITRACONAZOLE
     Indication: ASPERGILLUS INFECTION
     Dosage: UNK
  6. ENOXAPARIN [Concomitant]
     Active Substance: ENOXAPARIN
     Dosage: UNK
  7. ZOLPIDEM [Concomitant]
     Active Substance: ZOLPIDEM TARTRATE
     Dosage: UNK, HS
  8. VORICONAZOLE. [Suspect]
     Active Substance: VORICONAZOLE
     Dosage: 6 MG/KG, LOADING DOSE
     Route: 042
  9. FLUOXETINE [Concomitant]
     Active Substance: FLUOXETINE HYDROCHLORIDE
     Dosage: UNK
  10. BECLOMETHASONE                     /00212601/ [Concomitant]
     Active Substance: BECLOMETHASONE
     Dosage: 250 UG
     Route: 055
  11. SALMETEROL [Concomitant]
     Active Substance: SALMETEROL
     Dosage: UNK
  12. ETIDRONATE [Concomitant]
     Active Substance: ETIDRONATE DISODIUM
     Dosage: UNK
  13. FRUSEMIDE                          /00032601/ [Concomitant]
     Active Substance: FUROSEMIDE
     Dosage: 20 MG

REACTIONS (7)
  - Drug abuse [Unknown]
  - Unresponsive to stimuli [Recovered/Resolved]
  - Bundle branch block right [Unknown]
  - Hypotension [Recovered/Resolved]
  - Drug level increased [Recovered/Resolved]
  - Drug ineffective [Unknown]
  - Electrolyte imbalance [Recovered/Resolved]
